FAERS Safety Report 14278823 (Version 1)
Quarter: 2017Q4

REPORT INFORMATION
  Report Type: Spontaneous
  Country: ES (occurrence: ES)
  Receive Date: 20171212
  Receipt Date: 20171212
  Transmission Date: 20180321
  Serious: Yes (Other)
  Sender: FDA-Public Use
  Company Number: ES-MYLANLABS-2017M1076904

PATIENT
  Age: 54 Year
  Sex: Male

DRUGS (1)
  1. CALCITONIN SALMON. [Suspect]
     Active Substance: CALCITONIN SALMON
     Indication: PRODUCT USED FOR UNKNOWN INDICATION
     Dosage: 200 IU ADMINISTERED IN THE LEFT NOSTRIL
     Route: 045

REACTIONS (1)
  - Osteoma [Recovered/Resolved]
